FAERS Safety Report 20065372 (Version 2)
Quarter: 2021Q4

REPORT INFORMATION
  Report Type: Spontaneous
  Country: US (occurrence: US)
  Receive Date: 20211113
  Receipt Date: 20211201
  Transmission Date: 20220303
  Serious: No
  Sender: FDA-Public Use
  Company Number: US-CELGENE-USA-20211101720

PATIENT
  Sex: Female

DRUGS (6)
  1. REVLIMID [Suspect]
     Active Substance: LENALIDOMIDE
     Indication: Plasma cell myeloma
     Dosage: 25 MILLIGRAM
     Route: 048
     Dates: start: 202106
  2. REVLIMID [Suspect]
     Active Substance: LENALIDOMIDE
     Dosage: 25 MILLIGRAM
     Route: 048
     Dates: start: 202111
  3. VELCADE [Concomitant]
     Active Substance: BORTEZOMIB
     Indication: Plasma cell myeloma
     Dosage: .2857 MILLIGRAM
     Route: 058
     Dates: start: 20210604
  4. ACYCLOVIR [Concomitant]
     Active Substance: ACYCLOVIR
     Indication: Plasma cell myeloma
     Dosage: 400 MILLIGRAM
     Route: 048
     Dates: start: 202106
  5. DEXAMETHASONE [Concomitant]
     Active Substance: DEXAMETHASONE
     Indication: Plasma cell myeloma
     Dosage: 2.8571 MILLIGRAM
     Route: 048
     Dates: start: 202106
  6. ASPIRIN [Concomitant]
     Active Substance: ASPIRIN
     Indication: Plasma cell myeloma
     Dosage: 81 MILLIGRAM
     Route: 048
     Dates: start: 202106

REACTIONS (2)
  - Fatigue [Unknown]
  - Nausea [Recovered/Resolved]

NARRATIVE: CASE EVENT DATE: 20210101
